FAERS Safety Report 14396676 (Version 1)
Quarter: 2018Q1

REPORT INFORMATION
  Report Type: Spontaneous
  Country: US (occurrence: US)
  Receive Date: 20180116
  Receipt Date: 20180116
  Transmission Date: 20180509
  Serious: No
  Sender: FDA-Public Use
  Company Number: US-ALLERGAN-1758515US

PATIENT
  Sex: Female

DRUGS (2)
  1. BOTOX [Suspect]
     Active Substance: ONABOTULINUMTOXINA
     Dosage: UNK, SINGLE
     Route: 030
     Dates: start: 201706, end: 201706
  2. BOTOX [Suspect]
     Active Substance: ONABOTULINUMTOXINA
     Indication: MIGRAINE
     Dosage: UNK, SINGLE
     Route: 030
     Dates: start: 201310, end: 201310

REACTIONS (9)
  - Vision blurred [Unknown]
  - Musculoskeletal stiffness [Unknown]
  - Headache [Unknown]
  - Neck pain [Unknown]
  - Muscular weakness [Unknown]
  - Pain [Unknown]
  - Nausea [Unknown]
  - Head discomfort [Unknown]
  - Cervicogenic headache [Unknown]
